FAERS Safety Report 7051311-5 (Version None)
Quarter: 2010Q4

REPORT INFORMATION
  Report Type: 
  Country: None (occurrence: None)
  Receive Date: 20101019
  Receipt Date: 20101009
  Transmission Date: 20110411
  Serious: Yes (Other)
  Sender: FDA-Public Use
  Company Number: CN-SANOFI-AVENTIS-2010SA052402

PATIENT
  Age: 59 Year
  Sex: Female
  Weight: 70 kg

DRUGS (7)
  1. PLAVIX [Suspect]
     Indication: PERCUTANEOUS CORONARY INTERVENTION
     Route: 048
     Dates: start: 20100302
  2. PLAVIX [Suspect]
     Indication: ANGINA PECTORIS
     Route: 048
     Dates: start: 20100302
  3. PLAVIX [Suspect]
     Indication: STENT PLACEMENT
     Route: 048
     Dates: start: 20100302
  4. PLAVIX [Suspect]
     Route: 048
     Dates: start: 20100302
  5. ASPIRIN [Concomitant]
     Indication: PERCUTANEOUS CORONARY INTERVENTION
     Dosage: DOSE:1 UNIT(S)
     Route: 048
     Dates: start: 20100302
  6. SIMVASTATIN [Concomitant]
     Indication: HYPERLIPIDAEMIA
     Route: 048
     Dates: start: 20100302
  7. VASTAREL ^BIOPHARMA^ [Concomitant]
     Indication: PRODUCT USED FOR UNKNOWN INDICATION
     Route: 048
     Dates: start: 20100302

REACTIONS (4)
  - ANGINA PECTORIS [None]
  - CHEST DISCOMFORT [None]
  - OFF LABEL USE [None]
  - PRODUCT COUNTERFEIT [None]
